FAERS Safety Report 6703495-3 (Version None)
Quarter: 2010Q2

REPORT INFORMATION
  Report Type: 
  Country: None (occurrence: None)
  Receive Date: 20100428
  Receipt Date: 20100420
  Transmission Date: 20101027
  Serious: Yes (Hospitalization)
  Sender: FDA-Public Use
  Company Number: 2010SP015495

PATIENT
  Age: 85 Year
  Sex: Female
  Weight: 30 kg

DRUGS (6)
  1. REMERON [Suspect]
     Indication: DEPRESSION
     Dosage: 15 MG;QD;PO, 15 MG;QD;PO
     Route: 048
     Dates: start: 20091107, end: 20100306
  2. REMERON [Suspect]
     Indication: DEPRESSION
     Dosage: 15 MG;QD;PO, 15 MG;QD;PO
     Route: 048
     Dates: start: 20100407
  3. DIOVAN [Concomitant]
  4. SELARA (EPLERENONE) [Concomitant]
  5. CONIEL [Concomitant]
  6. PARIET [Concomitant]

REACTIONS (5)
  - CARDIAC FAILURE CONGESTIVE [None]
  - CARDIOMEGALY [None]
  - CONDITION AGGRAVATED [None]
  - OXYGEN SATURATION DECREASED [None]
  - PLEURAL EFFUSION [None]
